FAERS Safety Report 10037667 (Version 1)
Quarter: 2014Q1

REPORT INFORMATION
  Report Type: Spontaneous
  Country: US (occurrence: None)
  Receive Date: 20140325
  Receipt Date: 20140325
  Transmission Date: 20141002
  Serious: Yes (Life-Threatening)
  Sender: FDA-Public Use
  Company Number: None

PATIENT
  Age: 56 Year
  Sex: Male
  Weight: 101 kg

DRUGS (7)
  1. PROTAMINE SULFATE 10 MG/ML [Suspect]
     Indication: HEPARIN NEUTRALISATION THERAPY
     Route: 042
     Dates: start: 20140317, end: 20140317
  2. HEPARIN 1000 UNIT/ML [Suspect]
     Indication: CORONARY ARTERY BYPASS
     Dosage: 35,000 UNITS, REPEAT A 2ND DOSE, INTRAVENOUS
     Dates: start: 20140317, end: 20140317
  3. HEPARIN 1000 UNIT/ML [Suspect]
     Indication: ECHOCARDIOGRAM
     Dosage: 35,000 UNITS, REPEAT A 2ND DOSE, INTRAVENOUS
     Dates: start: 20140317, end: 20140317
  4. HEPARIN [Concomitant]
  5. VECURONUM [Concomitant]
  6. ALBUMIN [Concomitant]
  7. FENTANYL [Concomitant]

REACTIONS (3)
  - Hypotension [None]
  - Ventricular fibrillation [None]
  - Post procedural haemorrhage [None]
